FAERS Safety Report 9995249 (Version 1)
Quarter: 2014Q1

REPORT INFORMATION
  Report Type: Spontaneous
  Country: US (occurrence: None)
  Receive Date: 20140214
  Receipt Date: 20140214
  Transmission Date: 20141002
  Serious: Yes (Other)
  Sender: FDA-Public Use
  Company Number: US-013723

PATIENT
  Age: 60 Year
  Sex: Male

DRUGS (1)
  1. PREPOPIK [Suspect]
     Indication: BOWEL PREPARATION
     Dosage: (1ST DOSE AT 5 PM; 2ND DOSE AT 3:40 AM)
     Dates: start: 20131117, end: 20131118

REACTIONS (2)
  - Drug ineffective [None]
  - Diarrhoea [None]
